FAERS Safety Report 5626568-5 (Version None)
Quarter: 2008Q1

REPORT INFORMATION
  Report Type: 
  Country: None (occurrence: None)
  Receive Date: 20080214
  Receipt Date: 20080130
  Transmission Date: 20080703
  Serious: Yes (Other)
  Sender: FDA-Public Use
  Company Number: SE-GENENTECH-255401

PATIENT
  Sex: Female

DRUGS (7)
  1. HERCEPTIN [Suspect]
     Indication: BREAST CANCER
     Dosage: 470 MG, UNK
     Route: 065
     Dates: start: 20071203, end: 20080117
  2. TAXOTERE [Concomitant]
     Indication: BREAST CANCER
     Dates: start: 20071203
  3. TAXOL [Concomitant]
     Indication: BREAST CANCER
  4. ZOFRAN [Concomitant]
     Indication: DRUG USE FOR UNKNOWN INDICATION
  5. BETAPRED [Concomitant]
     Indication: PREMEDICATION
     Dates: start: 20071001
  6. BEHEPAN [Concomitant]
     Indication: DRUG USE FOR UNKNOWN INDICATION
     Dates: start: 20030415
  7. ESKIMO-3 FISH OIL [Concomitant]
     Indication: DRUG USE FOR UNKNOWN INDICATION

REACTIONS (4)
  - CARDIAC FAILURE [None]
  - HEART VALVE INCOMPETENCE [None]
  - LEFT VENTRICULAR HYPERTROPHY [None]
  - OEDEMA [None]
